FAERS Safety Report 10351305 (Version 3)
Quarter: 2014Q3

REPORT INFORMATION
  Report Type: Spontaneous
  Country: JP (occurrence: JP)
  Receive Date: 20140730
  Receipt Date: 20140922
  Transmission Date: 20150326
  Serious: Yes (Life-Threatening)
  Sender: FDA-Public Use
  Company Number: JP-GLAXOSMITHKLINE-B1013117A

PATIENT
  Age: 61 Year
  Sex: Female
  Weight: 70 kg

DRUGS (14)
  1. WARFARIN [Concomitant]
     Active Substance: WARFARIN
     Indication: DEEP VEIN THROMBOSIS
     Route: 048
  2. CELECOX [Concomitant]
     Active Substance: CELECOXIB
     Dosage: 100MG TWICE PER DAY
     Route: 048
  3. RANMARK [Concomitant]
     Active Substance: DENOSUMAB
     Route: 058
  4. ZANTAC [Suspect]
     Active Substance: RANITIDINE HYDROCHLORIDE
     Indication: PREMEDICATION
     Dosage: 100MG PER DAY
     Route: 042
     Dates: start: 20140704, end: 20140704
  5. TAKEPRON [Concomitant]
     Active Substance: LANSOPRAZOLE
     Dosage: 15MG PER DAY
     Route: 048
  6. ROCALTROL [Concomitant]
     Active Substance: CALCITRIOL
     Route: 048
  7. CHLOR-TRIMETON [Concomitant]
     Active Substance: CHLORPHENIRAMINE MALEATE
     Indication: PREMEDICATION
     Dosage: 10MG PER DAY
     Route: 042
     Dates: start: 20140704, end: 20140704
  8. ISOTONIC SODIUM CHLORIDE SOLUTION [Concomitant]
     Active Substance: SODIUM CHLORIDE
     Dosage: 50ML PER DAY
     Route: 042
     Dates: start: 20140704, end: 20140704
  9. MAGLAX [Concomitant]
     Active Substance: MAGNESIUM OXIDE
     Dosage: 330MG THREE TIMES PER DAY
     Route: 048
  10. CALCIUM LACTATE HYDRATE [Concomitant]
     Dosage: 1G THREE TIMES PER DAY
     Route: 048
  11. LYRICA [Concomitant]
     Active Substance: PREGABALIN
     Dosage: 75MG TWICE PER DAY
     Route: 048
  12. NAUZELIN [Concomitant]
     Active Substance: DOMPERIDONE
     Dosage: 1IUAX THREE TIMES PER DAY
     Route: 048
  13. OPSO [Concomitant]
     Active Substance: MORPHINE HYDROCHLORIDE
     Route: 048
  14. BIO-THREE [Concomitant]
     Active Substance: HERBALS
     Dosage: 1IUAX THREE TIMES PER DAY
     Route: 048

REACTIONS (22)
  - Depressed level of consciousness [Unknown]
  - Nausea [Recovered/Resolved]
  - Hypotension [Recovered/Resolved]
  - Shock [Recovering/Resolving]
  - Rash generalised [Unknown]
  - Vomiting [Recovered/Resolved]
  - Disseminated intravascular coagulation [Unknown]
  - Circulatory collapse [Recovered/Resolved]
  - Coagulation test abnormal [Unknown]
  - Nausea [Unknown]
  - Dizziness [Recovered/Resolved]
  - Urticaria [Recovered/Resolved]
  - Cardio-respiratory arrest [Recovering/Resolving]
  - Blood pressure decreased [Unknown]
  - Diarrhoea [Recovered/Resolved]
  - Anaphylactic shock [Recovered/Resolved]
  - Haemorrhagic diathesis [Unknown]
  - Septic shock [Unknown]
  - Flushing [Unknown]
  - Generalised erythema [Unknown]
  - Injection site pain [Unknown]
  - Haemoglobin decreased [Unknown]

NARRATIVE: CASE EVENT DATE: 201407
